FAERS Safety Report 5979451-X (Version None)
Quarter: 2008Q4

REPORT INFORMATION
  Report Type: 
  Country: None (occurrence: None)
  Receive Date: 20081204
  Receipt Date: 20081128
  Transmission Date: 20090506
  Serious: Yes (Death)
  Sender: FDA-Public Use
  Company Number: US-CELGENEUS-163-21880-08120019

PATIENT
  Sex: Female

DRUGS (3)
  1. REVLIMID [Suspect]
     Indication: MULTIPLE MYELOMA
     Route: 048
     Dates: start: 20080108, end: 20080101
  2. REVLIMID [Suspect]
     Route: 048
     Dates: start: 20061002, end: 20071001
  3. REVLIMID [Suspect]
     Dosage: 25-20MG
     Route: 048
     Dates: start: 20060314, end: 20060701

REACTIONS (1)
  - DEATH [None]
